FAERS Safety Report 26171307 (Version 2)
Quarter: 2025Q4

REPORT INFORMATION
  Report Type: Spontaneous
  Country: US (occurrence: US)
  Receive Date: 20251217
  Receipt Date: 20251229
  Transmission Date: 20260117
  Serious: Yes (Life-Threatening, Hospitalization, Other)
  Sender: PFIZER
  Company Number: US-MLMSERVICE-20251203-PI736976-00082-2

PATIENT
  Age: 75 Year
  Sex: Female

DRUGS (5)
  1. CARBOPLATIN [Suspect]
     Active Substance: CARBOPLATIN
     Indication: Atypical teratoid/rhabdoid tumour of CNS
     Dosage: CYCLIC (STANDARD DOSES; RECEIVED 1 CYCLE)
  2. IFOSFAMIDE [Suspect]
     Active Substance: IFOSFAMIDE
     Indication: Atypical teratoid/rhabdoid tumour of CNS
     Dosage: CYCLIC (10% DOSE REDUCTION IN IFOSFAMIDE DUE TO BASELINE RENAL DYSFUNCTION; RECEIVED 1 CYCLE)
  3. ETOPOSIDE [Suspect]
     Active Substance: ETOPOSIDE
     Indication: Atypical teratoid/rhabdoid tumour of CNS
     Dosage: UNK UNK, CYCLIC (STANDARD DOSES; RECEIVED 1 CYCLE)
  4. DEXAMETHASONE [Concomitant]
     Active Substance: DEXAMETHASONE
     Indication: Headache
     Dosage: UNK
  5. PEGFILGRASTIM [Concomitant]
     Active Substance: PEGFILGRASTIM
     Indication: Prophylaxis
     Dosage: UNK

REACTIONS (6)
  - Hyperglycaemia [Unknown]
  - Intensive care unit acquired weakness [Unknown]
  - Metabolic disorder [Unknown]
  - Acute kidney injury [Unknown]
  - Myelosuppression [Unknown]
  - Off label use [Unknown]
